FAERS Safety Report 18657878 (Version 3)
Quarter: 2021Q2

REPORT INFORMATION
  Report Type: Spontaneous
  Country: US (occurrence: US)
  Receive Date: 20201224
  Receipt Date: 20210407
  Transmission Date: 20210717
  Serious: Yes (Other)
  Sender: FDA-Public Use
  Company Number: US-HORIZON-2020HZN02659

PATIENT

DRUGS (4)
  1. TEPEZZA [Suspect]
     Active Substance: TEPROTUMUMAB-TRBW
     Dosage: UNK
     Route: 042
     Dates: start: 202012
  2. ESTROGEN [Concomitant]
     Active Substance: ESTROGENS
     Indication: PRODUCT USED FOR UNKNOWN INDICATION
  3. TEPEZZA [Suspect]
     Active Substance: TEPROTUMUMAB-TRBW
     Indication: ENDOCRINE OPHTHALMOPATHY
     Dosage: EVERY 3 WEEKS
     Route: 042
     Dates: start: 20201217
  4. TEPEZZA [Suspect]
     Active Substance: TEPROTUMUMAB-TRBW
     Dosage: UNK
     Route: 042
     Dates: start: 202101

REACTIONS (9)
  - Weight decreased [Recovering/Resolving]
  - Nail discolouration [Unknown]
  - Cellulitis [Recovering/Resolving]
  - Type 1 diabetes mellitus [Unknown]
  - Nail infection [Recovering/Resolving]
  - Eustachian tube obstruction [Not Recovered/Not Resolved]
  - Product availability issue [Unknown]
  - Alopecia [Not Recovered/Not Resolved]
  - Onychoclasis [Recovering/Resolving]

NARRATIVE: CASE EVENT DATE: 20201220
